FAERS Safety Report 9602476 (Version 3)
Quarter: 2014Q3

REPORT INFORMATION
  Report Type: Report from Study
  Country: US (occurrence: US)
  Receive Date: 20131007
  Receipt Date: 20140716
  Transmission Date: 20150326
  Serious: Yes (Hospitalization, Other)
  Sender: FDA-Public Use
  Company Number: PHHO2010US15324

PATIENT
  Age: 51 Year
  Sex: Female
  Weight: 94.35 kg

DRUGS (12)
  1. LANTUS [Concomitant]
     Active Substance: INSULIN GLARGINE
  2. INSULIN ASPART [Concomitant]
     Active Substance: INSULIN ASPART
     Indication: HYPERGLYCAEMIA
     Dosage: 540 MG, UNK
     Dates: start: 20100906
  3. TOPROL XL [Concomitant]
     Active Substance: METOPROLOL SUCCINATE
     Indication: HYPERTENSION
     Dosage: 50 MG, UNK
     Dates: start: 2006, end: 20110426
  4. INSULIN GLARGINE [Concomitant]
     Active Substance: INSULIN GLARGINE
     Indication: HYPERGLYCAEMIA
     Dosage: 32 U, QD
     Dates: start: 20100906
  5. GLUCOPHAGE [Concomitant]
     Active Substance: METFORMIN HYDROCHLORIDE
     Indication: DIABETES MELLITUS
  6. FLORINEF ACETATE [Concomitant]
     Active Substance: FLUDROCORTISONE ACETATE
  7. NORVASC [Concomitant]
     Active Substance: AMLODIPINE BESYLATE
     Indication: HYPERTENSION
     Dosage: 10 MG, QD
     Dates: start: 2009
  8. SOM230 [Suspect]
     Active Substance: PASIREOTIDE
     Indication: NEUROENDOCRINE TUMOUR
     Dosage: 60 MG, QD
     Route: 030
     Dates: start: 20100819, end: 201108
  9. ASPIRIN. [Concomitant]
     Active Substance: ASPIRIN
     Indication: CARDIAC DISORDER
     Dosage: 81 MG, QD
     Dates: start: 2006
  10. TOPREC [Concomitant]
     Active Substance: KETOPROFEN
     Indication: HYPERTENSION
     Dosage: 50 MG, UNK
     Dates: start: 2006, end: 20110426
  11. NITROSTAT [Concomitant]
     Active Substance: NITROGLYCERIN
     Indication: ANGINA PECTORIS
     Dosage: 0.4 MG, PRN
     Route: 048
     Dates: start: 1990
  12. VANCOMYCIN [Concomitant]
     Active Substance: VANCOMYCIN
     Dosage: 1.25 MG, UNK
     Dates: start: 20101217

REACTIONS (28)
  - Flank pain [Recovered/Resolved]
  - Syncope [Recovered/Resolved]
  - Septic embolus [Not Recovered/Not Resolved]
  - Nausea [Recovered/Resolved]
  - Pyrexia [Unknown]
  - Dyspnoea [Recovered/Resolved]
  - Diplopia [Recovered/Resolved]
  - Abdominal pain [Recovered/Resolved]
  - Cough [Unknown]
  - Hyperglycaemia [Recovered/Resolved]
  - Rectal haemorrhage [Recovered/Resolved]
  - Diarrhoea [Recovering/Resolving]
  - Adrenal insufficiency [Recovered/Resolved]
  - Factor VIII deficiency [Recovered/Resolved]
  - Prinzmetal angina [Recovered/Resolved]
  - Bacteraemia [Recovered/Resolved]
  - Septic shock [Not Recovered/Not Resolved]
  - Hypoglycaemia [Recovered/Resolved]
  - Abdominal pain lower [Not Recovered/Not Resolved]
  - Tricuspid valve incompetence [Not Recovered/Not Resolved]
  - Dizziness [Recovered/Resolved]
  - Hypoaesthesia [Recovered/Resolved]
  - Bradycardia [Recovered/Resolved]
  - Vision blurred [Recovered/Resolved]
  - Hypopituitarism [Recovered/Resolved]
  - Staphylococcal infection [Recovered/Resolved]
  - Hypokalaemia [Recovered/Resolved]
  - Asthenia [Recovered/Resolved]

NARRATIVE: CASE EVENT DATE: 20100906
